FAERS Safety Report 16485401 (Version 1)
Quarter: 2019Q2

REPORT INFORMATION
  Report Type: Spontaneous
  Country: FR (occurrence: FR)
  Receive Date: 20190627
  Receipt Date: 20190627
  Transmission Date: 20190711
  Serious: Yes (Other)
  Sender: FDA-Public Use
  Company Number: FR-MYLANLABS-2019M1059571

PATIENT
  Age: 63 Year
  Sex: Female

DRUGS (2)
  1. IMATINIB MYLAN 400 MG COMPRIM?S PELLICUL?S [Suspect]
     Active Substance: IMATINIB
     Indication: CHRONIC MYELOID LEUKAEMIA
     Dosage: 1 DOSAGE FORM, QD
     Route: 048
     Dates: start: 201803, end: 201804
  2. IMATINIB SANDOZ [Suspect]
     Active Substance: IMATINIB MESYLATE
     Indication: CHRONIC MYELOID LEUKAEMIA
     Dosage: 1 DOSAGE FORM, QD
     Route: 048
     Dates: start: 201804, end: 201809

REACTIONS (2)
  - Drug ineffective [Recovering/Resolving]
  - Philadelphia chromosome positive [Recovering/Resolving]

NARRATIVE: CASE EVENT DATE: 20180710
